FAERS Safety Report 7191774-8 (Version None)
Quarter: 2010Q4

REPORT INFORMATION
  Report Type: 
  Country: None (occurrence: None)
  Receive Date: 20101221
  Receipt Date: 20101221
  Transmission Date: 20110411
  Serious: No
  Sender: FDA-Public Use
  Company Number: None

PATIENT
  Sex: Female

DRUGS (3)
  1. TOPIRAMATE [Suspect]
     Indication: BIPOLAR DISORDER
     Dosage: 100MG 1/2 TID + 1/2 T 1 QHS  6-9 MONTHS AGO STARTED GENERIC
  2. TOPIRAMATE [Suspect]
     Indication: FIBROMYALGIA
     Dosage: 100MG 1/2 TID + 1/2 T 1 QHS  6-9 MONTHS AGO STARTED GENERIC
  3. TOPIRAMATE [Suspect]
     Indication: MIGRAINE
     Dosage: 100MG 1/2 TID + 1/2 T 1 QHS  6-9 MONTHS AGO STARTED GENERIC

REACTIONS (2)
  - ABDOMINAL PAIN UPPER [None]
  - PRODUCT QUALITY ISSUE [None]
